FAERS Safety Report 5085034-9 (Version None)
Quarter: 2006Q3

REPORT INFORMATION
  Report Type: 
  Country: None (occurrence: None)
  Receive Date: 20060815
  Receipt Date: 20060802
  Transmission Date: 20061208
  Serious: Yes (Hospitalization)
  Sender: FDA-Public Use
  Company Number: US200608000812

PATIENT
  Sex: Male

DRUGS (2)
  1. HUMULIN 70/30 [Suspect]
     Indication: DIABETES MELLITUS
  2. NOVOLOG MIX 70/30           (INSULIN ASPART, PROTAMINE INSULIN ASPART) [Concomitant]

REACTIONS (1)
  - CEREBROVASCULAR ACCIDENT [None]
